FAERS Safety Report 4447294-4 (Version None)
Quarter: 2004Q3

REPORT INFORMATION
  Report Type: 
  Country: None (occurrence: None)
  Receive Date: 20040813
  Receipt Date: 20040715
  Transmission Date: 20050211
  Serious: No
  Sender: FDA-Public Use
  Company Number: S04-USA-04088-01

PATIENT
  Age: 81 Year
  Sex: Male

DRUGS (10)
  1. NAMENDA [Suspect]
     Indication: DEMENTIA ALZHEIMER'S TYPE
     Dosage: 10 MG QAM PO
     Route: 048
     Dates: start: 20040313
  2. NAMENDA [Suspect]
     Indication: NORMAL PRESSURE HYDROCEPHALUS
     Dosage: 10 MG QAM PO
     Route: 048
     Dates: start: 20040313
  3. NAMENDA [Suspect]
     Indication: DEMENTIA ALZHEIMER'S TYPE
     Dosage: 5 MG QD PO
     Route: 048
     Dates: start: 20040313
  4. NAMENDA [Suspect]
     Indication: NORMAL PRESSURE HYDROCEPHALUS
     Dosage: 5 MG QD PO
     Route: 048
     Dates: start: 20040313
  5. NAMENDA [Suspect]
     Indication: DEMENTIA ALZHEIMER'S TYPE
     Dosage: 5 MG TID PO
     Route: 048
  6. NAMENDA [Suspect]
     Indication: NORMAL PRESSURE HYDROCEPHALUS
     Dosage: 5 MG TID PO
     Route: 048
  7. NAMENDA [Suspect]
     Indication: DEMENTIA ALZHEIMER'S TYPE
     Dosage: 5 MG QD PO
     Route: 048
     Dates: start: 20040228, end: 20040305
  8. NAMENDA [Suspect]
     Indication: NORMAL PRESSURE HYDROCEPHALUS
     Dosage: 5 MG QD PO
     Route: 048
     Dates: start: 20040228, end: 20040305
  9. NAMENDA [Suspect]
     Indication: DEMENTIA ALZHEIMER'S TYPE
     Dosage: 5 MG BID PO
     Route: 048
     Dates: start: 20040330, end: 20040312
  10. NAMENDA [Suspect]
     Indication: NORMAL PRESSURE HYDROCEPHALUS
     Dosage: 5 MG BID PO
     Route: 048
     Dates: start: 20040330, end: 20040312

REACTIONS (2)
  - LETHARGY [None]
  - RASH [None]
